FAERS Safety Report 10263151 (Version 2)
Quarter: 2014Q2

REPORT INFORMATION
  Report Type: Spontaneous
  Country: US (occurrence: US)
  Receive Date: 20140626
  Receipt Date: 20140626
  Transmission Date: 20141212
  Serious: Yes (Hospitalization)
  Sender: FDA-Public Use
  Company Number: US-MYLANLABS-2014S1003429

PATIENT
  Age: 57 Year
  Sex: Male

DRUGS (10)
  1. CLOZAPINE TABLETS [Suspect]
     Indication: SCHIZOAFFECTIVE DISORDER
     Route: 048
     Dates: end: 20140108
  2. CLOZAPINE TABLETS [Suspect]
     Indication: SCHIZOAFFECTIVE DISORDER
     Route: 048
     Dates: end: 20140108
  3. CLOZAPINE TABLETS [Suspect]
     Indication: SCHIZOAFFECTIVE DISORDER
     Route: 048
     Dates: start: 20140112
  4. CLOZAPINE TABLETS [Suspect]
     Indication: SCHIZOAFFECTIVE DISORDER
     Route: 048
     Dates: start: 20140112
  5. CLOZAPINE TABLETS [Suspect]
     Indication: SCHIZOAFFECTIVE DISORDER
     Route: 048
     Dates: start: 20140109, end: 20140111
  6. CLOZAPINE TABLETS [Suspect]
     Indication: SCHIZOAFFECTIVE DISORDER
     Route: 048
     Dates: start: 20140109, end: 20140111
  7. DEPAKOTE [Concomitant]
     Indication: CONVULSION PROPHYLAXIS
  8. CEFTRIAXONE [Concomitant]
     Indication: PNEUMONIA
     Dates: start: 20140109, end: 20140111
  9. AZITHROMYCIN [Concomitant]
     Indication: PNEUMONIA
     Dates: start: 20140109, end: 20140111
  10. LEVAQUIN [Concomitant]
     Indication: PNEUMONIA
     Dates: start: 20140112, end: 201401

REACTIONS (1)
  - Pneumonia [Recovering/Resolving]
